FAERS Safety Report 4552111-8 (Version None)
Quarter: 2004Q4

REPORT INFORMATION
  Report Type: 
  Country: None (occurrence: None)
  Receive Date: 20041217
  Receipt Date: 20041015
  Transmission Date: 20050328
  Serious: No
  Sender: FDA-Public Use
  Company Number: 2004-BP-10034BP

PATIENT
  Age: 78 Year
  Sex: Female

DRUGS (4)
  1. SPIRIVA [Suspect]
     Indication: CHRONIC OBSTRUCTIVE AIRWAYS DISEASE
     Dosage: 18 MCG (18 MCG), IH
     Route: 055
     Dates: start: 20040701
  2. SPIRIVA [Suspect]
  3. MAXAIR [Concomitant]
  4. ADVAIR (SERETIDE MITE) [Concomitant]

REACTIONS (3)
  - DRUG INEFFECTIVE [None]
  - LARYNGITIS [None]
  - PNEUMONIA [None]
